FAERS Safety Report 20838741 (Version 1)
Quarter: 2022Q2

REPORT INFORMATION
  Report Type: Spontaneous
  Country: CN (occurrence: CN)
  Receive Date: 20220517
  Receipt Date: 20220517
  Transmission Date: 20220720
  Serious: Yes (Hospitalization, Other)
  Sender: FDA-Public Use
  Company Number: CN-LUPIN PHARMACEUTICALS INC.-2022-07020

PATIENT
  Age: 63 Year
  Sex: Male

DRUGS (1)
  1. CEFIXIME [Suspect]
     Active Substance: CEFIXIME
     Indication: Infection prophylaxis
     Dosage: UNK
     Route: 065
     Dates: start: 2020

REACTIONS (1)
  - Clostridial sepsis [Recovered/Resolved]

NARRATIVE: CASE EVENT DATE: 20200101
